FAERS Safety Report 4564974-0 (Version None)
Quarter: 2005Q1

REPORT INFORMATION
  Report Type: 
  Country: None (occurrence: None)
  Receive Date: 20050131
  Receipt Date: 20050120
  Transmission Date: 20050727
  Serious: Yes (Death)
  Sender: FDA-Public Use
  Company Number: US-JNJFOC-20040909365

PATIENT
  Sex: Male
  Weight: 66.23 kg

DRUGS (8)
  1. RISPERDAL [Suspect]
     Indication: SCHIZOPHRENIA
     Route: 049
  2. DEPAKOTE [Concomitant]
  3. DEPAKOTE [Concomitant]
  4. DEPAKOTE [Concomitant]
     Indication: DRUG THERAPY
  5. TRAZODONE HCL [Concomitant]
  6. TRAZODONE HCL [Concomitant]
     Indication: INSOMNIA
  7. LAMICTAL [Concomitant]
  8. LAMICTAL [Concomitant]

REACTIONS (2)
  - POLYTRAUMATISM [None]
  - ROAD TRAFFIC ACCIDENT [None]
